FAERS Safety Report 13580789 (Version 1)
Quarter: 2017Q2

REPORT INFORMATION
  Report Type: Spontaneous
  Country: US (occurrence: US)
  Receive Date: 20170525
  Receipt Date: 20170525
  Transmission Date: 20170830
  Serious: Yes (Hospitalization)
  Sender: FDA-Public Use
  Company Number: None

PATIENT
  Age: 56 Year
  Sex: Male

DRUGS (3)
  1. CYMBALTA [Concomitant]
     Active Substance: DULOXETINE HYDROCHLORIDE
  2. CORTISOL [Concomitant]
     Active Substance: HYDROCORTISONE
  3. GENOTROPIN MINIQUICK 1.0 MG [Suspect]
     Active Substance: SOMATROPIN
     Indication: HYPOPITUITARISM
     Dosage: UNDER THE SKIN
     Route: 030

REACTIONS (2)
  - Asthma [None]
  - Infection [None]

NARRATIVE: CASE EVENT DATE: 201705
